FAERS Safety Report 6734677-2 (Version None)
Quarter: 2010Q2

REPORT INFORMATION
  Report Type: 
  Country: None (occurrence: None)
  Receive Date: 20100519
  Receipt Date: 20100519
  Transmission Date: 20101027
  Serious: No
  Sender: FDA-Public Use
  Company Number: None

PATIENT
  Age: 84 Year
  Sex: Male
  Weight: 81.8 kg

DRUGS (4)
  1. FENTANYL [Suspect]
     Indication: PAIN
     Dosage: FENTANYL 50MCG/HR Q72 HOURS TRANSDERMAL
     Route: 062
     Dates: start: 20100508
  2. FENTANYL [Suspect]
     Indication: SPINAL COLUMN STENOSIS
     Dosage: FENTANYL 50MCG/HR Q72 HOURS TRANSDERMAL
     Route: 062
     Dates: start: 20100508
  3. FENTANYL [Suspect]
     Indication: SPINAL FUSION SURGERY
     Dosage: FENTANYL 50MCG/HR Q72 HOURS TRANSDERMAL
     Route: 062
     Dates: start: 20100508
  4. METHADONE [Concomitant]

REACTIONS (1)
  - PRODUCT ADHESION ISSUE [None]
